FAERS Safety Report 7491404-1 (Version None)
Quarter: 2011Q2

REPORT INFORMATION
  Report Type: 
  Country: None (occurrence: None)
  Receive Date: 20110519
  Receipt Date: 20110505
  Transmission Date: 20111010
  Serious: Yes (Other)
  Sender: FDA-Public Use
  Company Number: PHHY2011US39347

PATIENT
  Age: 52 Year
  Sex: Female

DRUGS (4)
  1. RECLAST [Suspect]
     Dosage: 5 MG, UNK
     Route: 042
     Dates: start: 20091201
  2. ADVAIR DISKUS 100/50 [Concomitant]
  3. MICARDIS [Concomitant]
  4. RECLAST [Suspect]
     Route: 042
     Dates: start: 20100201

REACTIONS (5)
  - KNEE DEFORMITY [None]
  - DEHYDRATION [None]
  - INAPPROPRIATE SCHEDULE OF DRUG ADMINISTRATION [None]
  - VOMITING [None]
  - PYREXIA [None]
